FAERS Safety Report 13455212 (Version 2)
Quarter: 2017Q2

REPORT INFORMATION
  Report Type: Spontaneous
  Country: US (occurrence: US)
  Receive Date: 20170419
  Receipt Date: 20170510
  Transmission Date: 20170830
  Serious: Yes (Hospitalization, Other)
  Sender: FDA-Public Use
  Company Number: US-009507513-1704USA008086

PATIENT
  Age: 79 Year
  Sex: Female

DRUGS (3)
  1. HYDRALAZINE [Suspect]
     Active Substance: HYDRALAZINE HYDROCHLORIDE
     Indication: HYPERTENSION
     Dosage: 50 MG, BID
  2. LOTENSIN [Suspect]
     Active Substance: BENAZEPRIL HYDROCHLORIDE
     Indication: HYPERTENSION
     Dosage: 25 MG, Q4H
     Dates: start: 201612
  3. COZAAR [Suspect]
     Active Substance: LOSARTAN POTASSIUM
     Indication: HYPERTENSION
     Dosage: 100 MG, QD
     Route: 048

REACTIONS (6)
  - Horner^s syndrome [Unknown]
  - Coma [Unknown]
  - Drug ineffective [Unknown]
  - Artery dissection [Unknown]
  - Tongue paralysis [Unknown]
  - Vocal cord paralysis [Unknown]

NARRATIVE: CASE EVENT DATE: 201612
